FAERS Safety Report 4529906-X (Version None)
Quarter: 2004Q4

REPORT INFORMATION
  Report Type: 
  Country: None (occurrence: None)
  Receive Date: 20041214
  Receipt Date: 20041202
  Transmission Date: 20050328
  Serious: Yes (Other)
  Sender: FDA-Public Use
  Company Number: HQWYE745703DEC04

PATIENT
  Sex: Female

DRUGS (3)
  1. PREMARIN [Suspect]
     Indication: ATROPHIC VULVOVAGINITIS
     Dosage: ONE-HALF TO ONE FULL APPLICATOR DAILY, DOSE, FREQUENCY, + ROUTE USED 1.1 VAGINAL
     Route: 067
     Dates: start: 20020101
  2. EVISTA [Concomitant]
  3. PREVACID [Concomitant]

REACTIONS (1)
  - BASAL CELL CARCINOMA [None]
